FAERS Safety Report 8547330-X (Version None)
Quarter: 2012Q3

REPORT INFORMATION
  Report Type: 
  Country: None (occurrence: None)
  Receive Date: 20120727
  Receipt Date: 20120320
  Transmission Date: 20120928
  Serious: No
  Sender: FDA-Public Use
  Company Number: US-ASTRAZENECA-2012SE18957

PATIENT
  Age: 28 Year
  Sex: Female
  Weight: 47.6 kg

DRUGS (3)
  1. DISULFIRAM [Concomitant]
     Indication: DEPRESSION
  2. CLONAZEPAM [Concomitant]
     Indication: ANXIETY
  3. SEROQUEL [Suspect]
     Indication: POST-TRAUMATIC STRESS DISORDER
     Route: 048

REACTIONS (3)
  - OFF LABEL USE [None]
  - DRUG DOSE OMISSION [None]
  - DRUG WITHDRAWAL SYNDROME [None]
